FAERS Safety Report 5835890-9 (Version None)
Quarter: 2008Q3

REPORT INFORMATION
  Report Type: 
  Country: None (occurrence: None)
  Receive Date: 20080805
  Receipt Date: 20080725
  Transmission Date: 20090109
  Serious: Yes (Other)
  Sender: FDA-Public Use
  Company Number: 2008SP013319

PATIENT
  Age: 68 Year
  Sex: Male

DRUGS (2)
  1. REBETOL [Suspect]
     Indication: HEPATITIS C
     Dates: start: 20051022, end: 20051105
  2. PEGASYS [Suspect]
     Indication: HEPATITIS C
     Dates: start: 20051022, end: 20051105

REACTIONS (1)
  - ANGINA PECTORIS [None]
